FAERS Safety Report 8565734-6 (Version None)
Quarter: 2012Q3

REPORT INFORMATION
  Report Type: 
  Country: None (occurrence: None)
  Receive Date: 20120803
  Receipt Date: 20110927
  Transmission Date: 20120928
  Serious: No
  Sender: FDA-Public Use
  Company Number: US-ABBOTT-10P-163-0648003-00

PATIENT
  Sex: Female

DRUGS (2)
  1. NIASPAN [Suspect]
  2. NIASPAN [Suspect]
     Indication: PRODUCT USED FOR UNKNOWN INDICATION

REACTIONS (5)
  - GASTRITIS [None]
  - VOMITING [None]
  - MALAISE [None]
  - ERUCTATION [None]
  - ABDOMINAL DISCOMFORT [None]
